FAERS Safety Report 19101588 (Version 1)
Quarter: 2021Q2

REPORT INFORMATION
  Report Type: Spontaneous
  Country: US (occurrence: US)
  Receive Date: 20210407
  Receipt Date: 20210407
  Transmission Date: 20210717
  Serious: Yes (Hospitalization)
  Sender: FDA-Public Use
  Company Number: None

PATIENT
  Age: 69 Year
  Sex: Male
  Weight: 67 kg

DRUGS (3)
  1. METHYLPREDNISONE (METHYLPREDNISONE [Concomitant]
  2. LISINOPRIL (LISINOPRIL 40MG TAB) [Suspect]
     Active Substance: LISINOPRIL
     Indication: HYPERTENSION
     Route: 048
     Dates: start: 20180918, end: 20210127
  3. FAMOTIDINE (FAMOTIDINE [Concomitant]

REACTIONS (2)
  - Angioedema [None]
  - Paraesthesia oral [None]

NARRATIVE: CASE EVENT DATE: 20210127
